FAERS Safety Report 5751735-X (Version None)
Quarter: 2008Q2

REPORT INFORMATION
  Report Type: 
  Country: None (occurrence: None)
  Receive Date: 20080529
  Receipt Date: 20080526
  Transmission Date: 20081010
  Serious: Yes (Life-Threatening, Hospitalization, Disabling)
  Sender: FDA-Public Use
  Company Number: GB-RANBAXY-2006RR-03968

PATIENT

DRUGS (2)
  1. AMOXICILLIN + CLAVULANATE POTASSIUM [Suspect]
     Dosage: 1.2 G, SINGLE
     Route: 040
  2. BUPIVACAINE [Suspect]
     Indication: SPINAL ANAESTHESIA
     Dosage: 2.5 ML, UNK
     Route: 065

REACTIONS (7)
  - ANAPHYLACTIC SHOCK [None]
  - CIRCULATORY COLLAPSE [None]
  - ELECTROMECHANICAL DISSOCIATION [None]
  - HYPOTENSION [None]
  - LOSS OF CONSCIOUSNESS [None]
  - NERVOUS SYSTEM DISORDER [None]
  - VENTRICULAR FIBRILLATION [None]
